FAERS Safety Report 7231038-7 (Version None)
Quarter: 2011Q1

REPORT INFORMATION
  Report Type: 
  Country: None (occurrence: None)
  Receive Date: 20110118
  Receipt Date: 20110110
  Transmission Date: 20110831
  Serious: Yes (Hospitalization)
  Sender: FDA-Public Use
  Company Number: FR-ROCHE-752915

PATIENT
  Sex: Female
  Weight: 66 kg

DRUGS (5)
  1. TRAMADOL [Suspect]
     Route: 065
     Dates: start: 20100601
  2. LAROXYL [Suspect]
     Dosage: 1 TAB + 15 DROPS
     Route: 065
     Dates: start: 20100801
  3. RIBAVIRIN [Suspect]
     Route: 048
     Dates: start: 20110104
  4. PEGINTERFERON ALFA-2A [Suspect]
     Route: 058
     Dates: start: 20110104
  5. NORDAZ [Suspect]
     Route: 065
     Dates: start: 20101001

REACTIONS (1)
  - TOXICITY TO VARIOUS AGENTS [None]
